FAERS Safety Report 10502312 (Version 2)
Quarter: 2014Q4

REPORT INFORMATION
  Report Type: Spontaneous
  Country: JP (occurrence: JP)
  Receive Date: 20141007
  Receipt Date: 20141020
  Transmission Date: 20150528
  Serious: Yes (Other)
  Sender: FDA-Public Use
  Company Number: JP-SA-2014SA136575

PATIENT
  Age: 81 Year
  Sex: Male

DRUGS (6)
  1. ETHYL ICOSAPENTATE [Concomitant]
     Active Substance: ETHYL ICOSAPENTATE
     Route: 048
  2. AVAPRO [Suspect]
     Active Substance: IRBESARTAN
     Route: 048
  3. LIMAPROST ALFADEX [Suspect]
     Active Substance: LIMAPROST
     Route: 048
  4. LIVALO [Concomitant]
     Active Substance: PITAVASTATIN CALCIUM
     Route: 048
  5. ELIQUIS [Suspect]
     Active Substance: APIXABAN
     Route: 048
  6. FUROSEMIDE. [Concomitant]
     Active Substance: FUROSEMIDE

REACTIONS (8)
  - Melaena [Unknown]
  - Malaise [Unknown]
  - Ischaemic ulcer [Unknown]
  - Pneumothorax [Unknown]
  - Lung disorder [Unknown]
  - Hepatic function abnormal [Recovering/Resolving]
  - Dyspnoea [Unknown]
  - Decreased appetite [Unknown]
